FAERS Safety Report 6699309-0 (Version None)
Quarter: 2010Q2

REPORT INFORMATION
  Report Type: 
  Country: None (occurrence: None)
  Receive Date: 20100427
  Receipt Date: 20100415
  Transmission Date: 20101027
  Serious: Yes (Other)
  Sender: FDA-Public Use
  Company Number: US-ELI_LILLY_AND_COMPANY-US201004006815

PATIENT
  Age: 35 Year
  Sex: Female

DRUGS (4)
  1. CYMBALTA [Suspect]
     Indication: NEURALGIA
     Dosage: 1 D/F, 2/D
     Dates: start: 20100324
  2. CHEMOTHERAPEUTICS NOS [Concomitant]
  3. SYNTHROID [Concomitant]
  4. ZOLOFT [Concomitant]

REACTIONS (10)
  - ABDOMINAL PAIN [None]
  - ASCITES [None]
  - EPISTAXIS [None]
  - HEART RATE INCREASED [None]
  - OFF LABEL USE [None]
  - OROPHARYNGEAL PAIN [None]
  - PERIPHERAL COLDNESS [None]
  - RASH [None]
  - RHINORRHOEA [None]
  - THROAT TIGHTNESS [None]
